FAERS Safety Report 6312329-0 (Version None)
Quarter: 2009Q3

REPORT INFORMATION
  Report Type: 
  Country: None (occurrence: None)
  Receive Date: 20090817
  Receipt Date: 20090806
  Transmission Date: 20100115
  Serious: Yes (Death)
  Sender: FDA-Public Use
  Company Number: PHHY2009JP34288

PATIENT
  Sex: Male
  Weight: 56 kg

DRUGS (5)
  1. DIOVAN [Suspect]
     Dosage: 80 MG, QD
     Route: 048
     Dates: start: 20080602, end: 20080924
  2. BLOPRESS [Concomitant]
     Indication: HYPERTENSION
     Dosage: 6 MG, UNK
     Route: 048
     Dates: start: 20050202, end: 20080601
  3. AMLODIPINE [Concomitant]
     Indication: HYPERTENSION
     Dosage: 2.5 MG, UNK
     Route: 048
     Dates: start: 20060831, end: 20080924
  4. AMARYL [Concomitant]
     Dosage: 0.5 MG, UNK
     Route: 048
     Dates: start: 20070910, end: 20080924
  5. ALLOZYM [Concomitant]
     Dosage: 100 MG, UNK
     Route: 048
     Dates: start: 20080306, end: 20080924

REACTIONS (1)
  - ROAD TRAFFIC ACCIDENT [None]
